FAERS Safety Report 4426082-9 (Version None)
Quarter: 2004Q3

REPORT INFORMATION
  Report Type: 
  Country: None (occurrence: None)
  Receive Date: 20040811
  Receipt Date: 20040802
  Transmission Date: 20050211
  Serious: Yes (Other)
  Sender: FDA-Public Use
  Company Number: 2004RL000085

PATIENT
  Age: 70 Year
  Sex: Female

DRUGS (2)
  1. ISRADIPINE [Suspect]
     Indication: HYPERTENSION
     Dosage: 5 MG; PO
     Route: 048
     Dates: start: 20020813, end: 20021120
  2. HYDROCHLOROTHIAZIDE [Concomitant]

REACTIONS (2)
  - GINGIVAL OEDEMA [None]
  - OEDEMA PERIPHERAL [None]
